FAERS Safety Report 22623334 (Version 1)
Quarter: 2023Q2

REPORT INFORMATION
  Report Type: Spontaneous
  Country: RU (occurrence: None)
  Receive Date: 20230621
  Receipt Date: 20230621
  Transmission Date: 20230721
  Serious: Yes (Other)
  Sender: FDA-Public Use
  Company Number: RU-ROCHE-3372855

PATIENT
  Sex: Female

DRUGS (3)
  1. ROZLYTREK [Suspect]
     Active Substance: ENTRECTINIB
     Indication: Product used for unknown indication
     Route: 065
  2. SMECTA [Concomitant]
     Active Substance: MONTMORILLONITE
  3. REGIDRON [Concomitant]

REACTIONS (2)
  - Frequent bowel movements [Unknown]
  - Vomiting [Unknown]
